FAERS Safety Report 9641108 (Version 1)
Quarter: 2013Q4

REPORT INFORMATION
  Report Type: Spontaneous
  Country: US (occurrence: US)
  Receive Date: 20131023
  Receipt Date: 20131023
  Transmission Date: 20140711
  Serious: No
  Sender: FDA-Public Use
  Company Number: US-VERTEX PHARMACEUTICALS INC-2013-010525

PATIENT
  Age: 52 Year
  Sex: Male

DRUGS (3)
  1. INCIVEK [Suspect]
     Indication: HEPATITIS C
     Dosage: UNK
     Dates: start: 201307, end: 20131018
  2. RIBAVIRIN [Suspect]
     Indication: HEPATITIS C
     Dosage: 400MG AM, 600MG PM
     Dates: start: 201307
  3. PEGASYS [Suspect]
     Indication: HEPATITIS C
     Dosage: 180 ?G, QW
     Route: 058
     Dates: start: 201307

REACTIONS (5)
  - Dyspnoea [Not Recovered/Not Resolved]
  - Weight increased [Not Recovered/Not Resolved]
  - Asthenia [Not Recovered/Not Resolved]
  - Rash [Not Recovered/Not Resolved]
  - Anaemia [Not Recovered/Not Resolved]
